FAERS Safety Report 11874333 (Version 1)
Quarter: 2015Q4

REPORT INFORMATION
  Report Type: Spontaneous
  Country: US (occurrence: US)
  Receive Date: 20151229
  Receipt Date: 20151229
  Transmission Date: 20160305
  Serious: No
  Sender: FDA-Public Use
  Company Number: US-DEXPHARM-20151037

PATIENT
  Age: 75 Year
  Sex: Male
  Weight: 113.38 kg

DRUGS (10)
  1. OCUVITE [Concomitant]
     Active Substance: VITAMINS
     Indication: MACULAR DEGENERATION
     Dosage: UNK
     Route: 065
     Dates: start: 2004
  2. VITAMIN D [Concomitant]
     Active Substance: CHOLECALCIFEROL
     Indication: SUPPLEMENTATION THERAPY
     Dosage: UNK
     Route: 065
  3. ALLOPURINOL. [Concomitant]
     Active Substance: ALLOPURINOL
     Indication: GOUT
     Dosage: UNK
     Route: 065
     Dates: start: 2009
  4. FUROSEMIDE. [Concomitant]
     Active Substance: FUROSEMIDE
     Indication: OEDEMA
     Dosage: 40 MG
     Route: 065
     Dates: start: 2014
  5. PRAVASTATIN [Concomitant]
     Active Substance: PRAVASTATIN\PRAVASTATIN SODIUM
     Indication: BLOOD CHOLESTEROL INCREASED
     Dosage: 20 MG
     Route: 065
  6. OMEPRAZOLE DELAYED RELEASE [Suspect]
     Active Substance: OMEPRAZOLE
     Indication: GASTROOESOPHAGEAL REFLUX DISEASE
     Dosage: 20 MG, BID
     Route: 048
     Dates: start: 2005, end: 20140730
  7. FENOFIBRATE. [Concomitant]
     Active Substance: FENOFIBRATE
     Indication: BLOOD TRIGLYCERIDES INCREASED
     Dosage: UNK
     Route: 065
     Dates: start: 2012
  8. AMLODIPINE [Concomitant]
     Active Substance: AMLODIPINE BESYLATE
     Indication: HYPERTENSION
     Dosage: 10 MG
     Route: 065
     Dates: start: 2012
  9. LYRICA [Concomitant]
     Active Substance: PREGABALIN
     Indication: NEURALGIA
     Dosage: UNK
     Route: 065
     Dates: start: 201409
  10. ASPIRIN. [Concomitant]
     Active Substance: ASPIRIN
     Indication: CARDIOVASCULAR EVENT PROPHYLAXIS
     Dosage: 81MG
     Route: 065

REACTIONS (2)
  - Condition aggravated [Recovered/Resolved]
  - Drug effect decreased [Unknown]

NARRATIVE: CASE EVENT DATE: 20140724
